FAERS Safety Report 22163901 (Version 1)
Quarter: 2023Q2

REPORT INFORMATION
  Report Type: Report from Study
  Country: DE (occurrence: DE)
  Receive Date: 20230401
  Receipt Date: 20230401
  Transmission Date: 20230721
  Serious: Yes (Hospitalization)
  Sender: FDA-Public Use
  Company Number: DE-ABBVIE-4208677

PATIENT
  Age: 83 Year
  Sex: Male
  Weight: 69 kg

DRUGS (13)
  1. VENETOCLAX [Suspect]
     Active Substance: VENETOCLAX
     Indication: Chronic lymphocytic leukaemia
     Dosage: RECEIVED LAST DOSE ON 17/OCT/2018 CYCLE 1: 20 MG (2 TABL. AT 10 MG), D22-28, Q28D CYCLE 2: 50 MG ...
     Route: 048
     Dates: start: 20171115
  2. IBRUTINIB [Suspect]
     Active Substance: IBRUTINIB
     Indication: Chronic lymphocytic leukaemia
     Dosage: RECEIVED LAST DOSE ON 12/DEC/2018. CYCLES 1-12: 420 MG, D1-28, Q28D CYCLES 13-36: 420 MG, D1-28, ...
     Route: 048
     Dates: start: 20171115
  3. OBINUTUZUMAB [Concomitant]
     Active Substance: OBINUTUZUMAB
     Indication: Chronic lymphocytic leukaemia
     Route: 042
     Dates: start: 20171115, end: 20180403
  4. FAMOTIDINE [Concomitant]
     Active Substance: FAMOTIDINE
     Indication: Product used for unknown indication
     Route: 048
     Dates: start: 20221120
  5. FUROSEMIDE [Concomitant]
     Active Substance: FUROSEMIDE
     Indication: Product used for unknown indication
     Dates: start: 20221113, end: 20221113
  6. FUROSEMIDE [Concomitant]
     Active Substance: FUROSEMIDE
     Indication: Product used for unknown indication
     Dates: start: 20221115, end: 20221115
  7. POSACONAZOLE [Concomitant]
     Active Substance: POSACONAZOLE
     Indication: Product used for unknown indication
     Route: 048
  8. POSACONAZOLE [Concomitant]
     Active Substance: POSACONAZOLE
     Indication: Product used for unknown indication
     Route: 048
  9. Kalinor [Concomitant]
     Indication: Product used for unknown indication
     Route: 048
     Dates: start: 20221113, end: 20221117
  10. Kalinor [Concomitant]
     Indication: Product used for unknown indication
     Route: 048
     Dates: start: 20221107, end: 20221112
  11. GRANISETRON [Concomitant]
     Active Substance: GRANISETRON
     Indication: Product used for unknown indication
     Dates: start: 20221115, end: 20221115
  12. COTRIM [Concomitant]
     Active Substance: SULFAMETHOXAZOLE\TRIMETHOPRIM
     Indication: Product used for unknown indication
     Route: 048
     Dates: start: 20221109, end: 20221118
  13. MCP [Concomitant]
     Active Substance: METOCLOPRAMIDE HYDROCHLORIDE
     Indication: Product used for unknown indication
     Dates: start: 20221118, end: 20221118

REACTIONS (2)
  - Bacteraemia [Recovered/Resolved]
  - Diverticulitis [Not Recovered/Not Resolved]

NARRATIVE: CASE EVENT DATE: 20221106
